FAERS Safety Report 11242260 (Version 2)
Quarter: 2015Q3

REPORT INFORMATION
  Report Type: Report from Study
  Country: CL (occurrence: CL)
  Receive Date: 20150707
  Receipt Date: 20150814
  Transmission Date: 20151125
  Serious: Yes (Hospitalization)
  Sender: FDA-Public Use
  Company Number: CL-ROCHE-1603550

PATIENT
  Age: 62 Year
  Sex: Male
  Weight: 67 kg

DRUGS (2)
  1. XELODA [Suspect]
     Active Substance: CAPECITABINE
     Indication: RECTAL CANCER
     Dosage: 14 DAYS PER CYCLE.
     Route: 048
     Dates: start: 20140108, end: 20140119
  2. INSULIN [Concomitant]
     Active Substance: INSULIN NOS
     Indication: DIABETES MELLITUS
     Route: 058
     Dates: start: 2005

REACTIONS (9)
  - Pyrexia [Recovered/Resolved]
  - Blood potassium decreased [Recovered/Resolved]
  - Diarrhoea [Recovered/Resolved]
  - Blood creatinine abnormal [Recovered/Resolved]
  - Hypotension [Recovered/Resolved]
  - Immune system disorder [Recovered/Resolved]
  - Vomiting [Recovered/Resolved]
  - Infection [Recovered/Resolved]
  - Skin ulcer [Unknown]

NARRATIVE: CASE EVENT DATE: 201507
